FAERS Safety Report 10541532 (Version 1)
Quarter: 2014Q4

REPORT INFORMATION
  Report Type: Report from Study
  Country: MX (occurrence: MX)
  Receive Date: 20141024
  Receipt Date: 20141024
  Transmission Date: 20150529
  Serious: Yes (Death)
  Sender: FDA-Public Use
  Company Number: PHHY2014MX135834

PATIENT
  Age: 69 Year
  Sex: Female

DRUGS (1)
  1. NILOTINIB [Suspect]
     Active Substance: NILOTINIB
     Dosage: 800 MG, EVERY 24 HOURS
     Dates: start: 20131203, end: 20141012

REACTIONS (2)
  - Depression [Unknown]
  - Lung disorder [Fatal]
